FAERS Safety Report 5622825-7 (Version None)
Quarter: 2008Q1

REPORT INFORMATION
  Report Type: 
  Country: None (occurrence: None)
  Receive Date: 20080208
  Receipt Date: 20080208
  Transmission Date: 20080703
  Serious: Yes (Hospitalization)
  Sender: FDA-Public Use
  Company Number: None

PATIENT
  Sex: Male
  Weight: 158.1239 kg

DRUGS (40)
  1. REQUIP [Suspect]
     Indication: PARKINSON'S DISEASE
     Dosage: 4 MG DAILY PO
     Route: 048
     Dates: start: 20070723, end: 20070808
  2. REQUIP [Suspect]
     Indication: PARKINSON'S DISEASE
  3. REQUIP [Suspect]
     Indication: PARKINSON'S DISEASE
     Route: 048
     Dates: start: 20070809, end: 20070815
  4. REQUIP [Suspect]
     Indication: PARKINSON'S DISEASE
     Dosage: 8 MG DAILY PO
     Route: 048
     Dates: start: 20070809, end: 20070815
  5. REQUIP [Suspect]
     Indication: PARKINSON'S DISEASE
     Dosage: 8 MG DAILY PO
     Route: 048
     Dates: start: 20070816, end: 20071016
  6. REQUIP [Suspect]
     Indication: PARKINSON'S DISEASE
     Dates: start: 20071017
  7. REQUIP [Suspect]
     Indication: PARKINSON'S DISEASE
     Dosage: 12 MG DAILY PO
     Route: 048
     Dates: start: 20071017
  8. REQUIP [Suspect]
     Indication: PARKINSON'S DISEASE
     Dosage: 16 MG DAILY PO
     Route: 048
     Dates: start: 20070816, end: 20071016
  9. REQUIP [Suspect]
     Indication: PARKINSON'S DISEASE
     Dosage: 20 MG DAILY PO
     Route: 048
     Dates: start: 20071017
  10. . [Concomitant]
  11. . [Concomitant]
  12. SELEGILINE HCL [Concomitant]
  13. AMANTADINE HCL [Concomitant]
  14. SINEMET CR [Concomitant]
  15. STALEVO 100 [Concomitant]
  16. MIRAPEX [Concomitant]
  17. NEXIUM [Concomitant]
  18. ALBUTEROL [Concomitant]
  19. ASPIRIN [Concomitant]
  20. IBUPROFEN [Concomitant]
  21. LIDOCAINE [Concomitant]
  22. DIPRIVAN [Concomitant]
  23. FENTANYL [Concomitant]
  24. VERSED [Concomitant]
  25. ROBINAL IV [Concomitant]
  26. GLUCAGON [Concomitant]
  27. ZOFRAN [Concomitant]
  28. CEFOXITIN [Concomitant]
  29. MORPHINE [Concomitant]
  30. VICODIN [Concomitant]
  31. LOPRESSOR [Concomitant]
  32. POTASSIUM TAB [Concomitant]
  33. LOVENOX [Concomitant]
  34. VITAMIN B-12 [Concomitant]
  35. LYRICA [Concomitant]
  36. HEPARIN SODIUM [Concomitant]
  37. PEPCID [Concomitant]
  38. AMBIEN [Concomitant]
  39. CIPROFLOXACIN [Concomitant]
  40. MORPHINE SULFATE [Concomitant]

REACTIONS (1)
  - INGUINAL HERNIA, OBSTRUCTIVE [None]
